FAERS Safety Report 6661141-1 (Version None)
Quarter: 2010Q1

REPORT INFORMATION
  Report Type: 
  Country: None (occurrence: None)
  Receive Date: 20100331
  Receipt Date: 20100329
  Transmission Date: 20100710
  Serious: Yes (Other)
  Sender: FDA-Public Use
  Company Number: A0799388A

PATIENT
  Age: 36 Year
  Sex: Male
  Weight: 91 kg

DRUGS (9)
  1. WELLBUTRIN [Suspect]
     Indication: DEPRESSION
     Route: 048
     Dates: start: 20090301
  2. REBIF [Suspect]
     Indication: MULTIPLE SCLEROSIS
     Dosage: 44MCG THREE TIMES PER WEEK
     Route: 058
     Dates: start: 20090301, end: 20090625
  3. MORPHINE [Suspect]
     Route: 065
     Dates: start: 20090601
  4. GABAPENTIN [Concomitant]
     Dates: start: 20090301
  5. AMBIEN [Concomitant]
     Dates: start: 20090301
  6. HYDROCODONE [Concomitant]
  7. XANAX [Concomitant]
     Indication: ANXIETY
  8. NAPROXEN [Concomitant]
     Dates: start: 20090301
  9. COPAXONE [Concomitant]
     Dates: start: 20090101

REACTIONS (7)
  - ALCOHOL POISONING [None]
  - CRYING [None]
  - DEPRESSION [None]
  - INAPPROPRIATE SCHEDULE OF DRUG ADMINISTRATION [None]
  - PARAESTHESIA [None]
  - SUICIDAL IDEATION [None]
  - SUICIDE ATTEMPT [None]
